FAERS Safety Report 23608629 (Version 1)
Quarter: 2024Q1

REPORT INFORMATION
  Report Type: Spontaneous
  Country: AU (occurrence: AU)
  Receive Date: 20240308
  Receipt Date: 20240308
  Transmission Date: 20240409
  Serious: Yes (Hospitalization)
  Sender: FDA-Public Use
  Company Number: AU-AMGEN-AUSSP2024045503

PATIENT
  Sex: Female

DRUGS (1)
  1. ADALIMUMAB [Suspect]
     Active Substance: ADALIMUMAB\ISOPROPYL ALCOHOL
     Indication: Pyoderma gangrenosum
     Dosage: 40 MILLIGRAM
     Route: 065

REACTIONS (4)
  - Pain [Recovering/Resolving]
  - Infection [Recovering/Resolving]
  - Skin ulcer [Recovering/Resolving]
  - Impaired quality of life [Recovering/Resolving]
